FAERS Safety Report 14057245 (Version 2)
Quarter: 2017Q4

REPORT INFORMATION
  Report Type: Spontaneous
  Country: FR (occurrence: FR)
  Receive Date: 20171006
  Receipt Date: 20171121
  Transmission Date: 20180321
  Serious: Yes (Other)
  Sender: FDA-Public Use
  Company Number: FR-MERCK KGAA-2029074

PATIENT
  Sex: Female

DRUGS (2)
  1. NOVOTHYROX [Suspect]
     Active Substance: LEVOTHYROXINE SODIUM
  2. NOVOTHYROX [Suspect]
     Active Substance: LEVOTHYROXINE SODIUM
     Indication: AUTOIMMUNE THYROIDITIS

REACTIONS (8)
  - Fatigue [None]
  - Insomnia [None]
  - Myalgia [Recovering/Resolving]
  - Gait disturbance [None]
  - Hyperthyroidism [None]
  - Alopecia [None]
  - Pain in extremity [None]
  - Arthropathy [None]

NARRATIVE: CASE EVENT DATE: 201705
